FAERS Safety Report 11771137 (Version 1)
Quarter: 2015Q4

REPORT INFORMATION
  Report Type: Spontaneous
  Country: US (occurrence: US)
  Receive Date: 20151124
  Receipt Date: 20151124
  Transmission Date: 20160304
  Serious: Yes (Other)
  Sender: FDA-Public Use
  Company Number: US-HOSPIRA-2781591

PATIENT
  Age: 66 Year
  Sex: Female
  Weight: 61.24 kg

DRUGS (2)
  1. MIDAZOLAM [Suspect]
     Active Substance: MIDAZOLAM\MIDAZOLAM HYDROCHLORIDE
     Indication: HIGH FREQUENCY ABLATION
     Dosage: NOT REPORTED
     Route: 042
     Dates: start: 20150106
  2. LIDOCAINE HYDROCHLORIDE. [Suspect]
     Active Substance: LIDOCAINE HYDROCHLORIDE
     Indication: HIGH FREQUENCY ABLATION
     Dosage: NOT REPORTED
     Route: 042
     Dates: start: 20150106

REACTIONS (1)
  - Hypersensitivity [Recovered/Resolved]

NARRATIVE: CASE EVENT DATE: 20150107
